FAERS Safety Report 15854588 (Version 3)
Quarter: 2022Q3

REPORT INFORMATION
  Report Type: Report from Study
  Country: CN (occurrence: CN)
  Receive Date: 20190122
  Receipt Date: 20220823
  Transmission Date: 20221027
  Serious: Yes (Life-Threatening)
  Sender: FDA-Public Use
  Company Number: CN-JNJFOC-20190120862

PATIENT
  Age: 26 Year
  Sex: Male
  Weight: 45.3 kg

DRUGS (6)
  1. SIRTURO [Suspect]
     Active Substance: BEDAQUILINE FUMARATE
     Indication: Tuberculosis
     Route: 048
     Dates: start: 20181228, end: 20190110
  2. CLOFAZIMINE [Suspect]
     Active Substance: CLOFAZIMINE
     Indication: Tuberculosis
     Route: 048
     Dates: start: 20181228, end: 20190110
  3. MOXIFLOXACIN [Suspect]
     Active Substance: MOXIFLOXACIN
     Indication: Tuberculosis
     Route: 048
     Dates: start: 20181228
  4. LINEZOLID [Suspect]
     Active Substance: LINEZOLID
     Indication: Tuberculosis
     Route: 048
     Dates: start: 20181229, end: 20190110
  5. CYCLOSERINE [Suspect]
     Active Substance: CYCLOSERINE
     Indication: Tuberculosis
     Route: 048
     Dates: start: 20181228, end: 20190110
  6. AMINOSALICYLIC ACID [Suspect]
     Active Substance: AMINOSALICYLIC ACID
     Indication: Tuberculosis
     Route: 041
     Dates: start: 20181228, end: 20190110

REACTIONS (1)
  - Electrocardiogram QT prolonged [Recovered/Resolved]

NARRATIVE: CASE EVENT DATE: 20190108
